FAERS Safety Report 15463011 (Version 1)
Quarter: 2018Q4

REPORT INFORMATION
  Report Type: Spontaneous
  Country: US (occurrence: US)
  Receive Date: 20181004
  Receipt Date: 20181004
  Transmission Date: 20190204
  Serious: No
  Sender: FDA-Public Use
  Company Number: US-009507513-1809USA003206

PATIENT
  Age: 68 Year
  Sex: Female

DRUGS (6)
  1. CENTRUM SILVER [Concomitant]
     Active Substance: MINERALS\VITAMINS
  2. JANUVIA [Suspect]
     Active Substance: SITAGLIPTIN PHOSPHATE
     Indication: TYPE 2 DIABETES MELLITUS
     Dosage: 1 TABLET DAILY
     Route: 048
     Dates: start: 201804, end: 201806
  3. JANUVIA [Suspect]
     Active Substance: SITAGLIPTIN PHOSPHATE
     Dosage: SPLIT THE TABLET IN TWO
     Route: 048
     Dates: start: 201806
  4. NATURE-THROID [Concomitant]
     Active Substance: THYROID, PORCINE
  5. CYANOCOBALAMIN. [Concomitant]
     Active Substance: CYANOCOBALAMIN
  6. RANITIDINE. [Concomitant]
     Active Substance: RANITIDINE

REACTIONS (3)
  - Abdominal discomfort [Recovering/Resolving]
  - Wrong technique in product usage process [Unknown]
  - Adverse event [Unknown]

NARRATIVE: CASE EVENT DATE: 201804
